FAERS Safety Report 16173912 (Version 1)
Quarter: 2019Q2

REPORT INFORMATION
  Report Type: Report from Study
  Country: US (occurrence: US)
  Receive Date: 20190409
  Receipt Date: 20190409
  Transmission Date: 20190711
  Serious: Yes (Death)
  Sender: FDA-Public Use
  Company Number: US-TAIHO ONCOLOGY  INC-EU-2019-01063

PATIENT
  Age: 60 Year
  Sex: Male

DRUGS (23)
  1. FLONASE ALLERGY RELIEF [Concomitant]
     Active Substance: FLUTICASONE PROPIONATE
     Dosage: NI
  2. IMODIUM A-D [Concomitant]
     Active Substance: LOPERAMIDE HYDROCHLORIDE
  3. POTASSIUM GLUCONATE [Concomitant]
     Active Substance: POTASSIUM GLUCONATE
     Dosage: NI
  4. SYNTHROID [Concomitant]
     Active Substance: LEVOTHYROXINE SODIUM
  5. TRAVATAN [Concomitant]
     Active Substance: TRAVOPROST
  6. ADVIL [Concomitant]
     Active Substance: IBUPROFEN
  7. LONSURF [Suspect]
     Active Substance: TIPIRACIL HYDROCHLORIDE\TRIFLURIDINE
     Indication: COLORECTAL CANCER METASTATIC
     Route: 048
     Dates: start: 20190312
  8. ELIQUIS [Concomitant]
     Active Substance: APIXABAN
  9. ZANTAC [Concomitant]
     Active Substance: RANITIDINE HYDROCHLORIDE
     Dosage: NI
  10. PROBIOTIC [Concomitant]
     Active Substance: PROBIOTICS NOS
  11. MAGNESIUM [Concomitant]
     Active Substance: MAGNESIUM
     Dosage: NI
  12. ZOFRAN [Concomitant]
     Active Substance: ONDANSETRON HYDROCHLORIDE
     Dosage: NI
  13. LOMOTIL [Concomitant]
     Active Substance: ATROPINE SULFATE\DIPHENOXYLATE HYDROCHLORIDE
     Dosage: NI
  14. MULTIVITAMINS [Concomitant]
     Active Substance: VITAMINS
     Dosage: NI
  15. NORCO [Concomitant]
     Active Substance: ACETAMINOPHEN\HYDROCODONE BITARTRATE
     Dosage: 5 MG-32
  16. SALINE NASAL SPRAY [Concomitant]
     Active Substance: SODIUM CHLORIDE
  17. CLINDAMYCIN PHOSPHATE. [Concomitant]
     Active Substance: CLINDAMYCIN PHOSPHATE
     Dosage: NI
  18. IRON [Concomitant]
     Active Substance: IRON
     Dosage: NI
  19. SYSTANE (HYPROMELLOSE 2910 (4000 MPA.S)) [Concomitant]
     Active Substance: HYPROMELLOSE 2910 (4000 MPA.S)
     Dosage: 0.3%-0
  20. ZOLOFT [Concomitant]
     Active Substance: SERTRALINE HYDROCHLORIDE
     Dosage: NI
  21. COLACE [Concomitant]
     Active Substance: DOCUSATE SODIUM
  22. PHENERGAN [Concomitant]
     Active Substance: PROMETHAZINE HYDROCHLORIDE
  23. TYLENOL [Concomitant]
     Active Substance: ACETAMINOPHEN
     Dosage: NI

REACTIONS (1)
  - Death [Fatal]

NARRATIVE: CASE EVENT DATE: 20190328
